FAERS Safety Report 17910951 (Version 1)
Quarter: 2020Q2

REPORT INFORMATION
  Report Type: Spontaneous
  Country: ES (occurrence: ES)
  Receive Date: 20200618
  Receipt Date: 20200618
  Transmission Date: 20200714
  Serious: Yes (Life-Threatening, Hospitalization)
  Sender: FDA-Public Use
  Company Number: NVSC2020ES169448

PATIENT
  Age: 62 Year
  Sex: Female

DRUGS (5)
  1. CEFTRIAXONE. [Interacting]
     Active Substance: CEFTRIAXONE
     Indication: CORONAVIRUS INFECTION
  2. AZITHROMYCIN ANHYDROUS. [Interacting]
     Active Substance: AZITHROMYCIN ANHYDROUS
     Indication: PNEUMONIA
  3. CEFTRIAXONE. [Suspect]
     Active Substance: CEFTRIAXONE
     Indication: PNEUMONIA
     Dosage: 2 G, QD (2 GR DIA)
     Route: 042
     Dates: start: 20200318, end: 20200322
  4. DOLQUINE [Interacting]
     Active Substance: HYDROXYCHLOROQUINE SULFATE
     Indication: CORONAVIRUS INFECTION
     Dosage: 400 MG, QD (400 MG DIA)
     Route: 048
     Dates: start: 20200319, end: 20200325
  5. AZITHROMYCIN ANHYDROUS. [Interacting]
     Active Substance: AZITHROMYCIN ANHYDROUS
     Indication: CORONAVIRUS INFECTION
     Dosage: 500 MG, QD (500MG DIA)
     Route: 048
     Dates: start: 20200323, end: 20200325

REACTIONS (2)
  - Hepatitis [Recovering/Resolving]
  - Long QT syndrome [Unknown]

NARRATIVE: CASE EVENT DATE: 20200324
